FAERS Safety Report 8490563-1 (Version None)
Quarter: 2012Q3

REPORT INFORMATION
  Report Type: 
  Country: None (occurrence: None)
  Receive Date: 20120705
  Receipt Date: 20120629
  Transmission Date: 20120928
  Serious: Yes (Other)
  Sender: FDA-Public Use
  Company Number: JP-ABBOTT-12P-087-0951432-00

PATIENT
  Sex: Female

DRUGS (5)
  1. CEFZON FINE GRANULES [Suspect]
     Indication: INFECTION
     Route: 048
     Dates: start: 20120611, end: 20120614
  2. HUSCODE [Concomitant]
     Indication: PRODUCT USED FOR UNKNOWN INDICATION
     Dates: start: 20120608
  3. CEFZON FINE GRANULES [Suspect]
     Dosage: REGIMEN #2
     Route: 048
  4. ACETAMINOPHEN [Concomitant]
     Indication: PRODUCT USED FOR UNKNOWN INDICATION
     Dates: start: 20120608
  5. ZESULAN [Concomitant]
     Indication: PRODUCT USED FOR UNKNOWN INDICATION
     Dates: start: 20120608

REACTIONS (2)
  - VARICELLA [None]
  - VAGINAL DISCHARGE [None]
